FAERS Safety Report 18718613 (Version 2)
Quarter: 2021Q1

REPORT INFORMATION
  Report Type: Spontaneous
  Country: FR (occurrence: FR)
  Receive Date: 20210108
  Receipt Date: 20210218
  Transmission Date: 20210419
  Serious: Yes (Life-Threatening, Hospitalization)
  Sender: FDA-Public Use
  Company Number: FR-TEVA-2021-FR-1866190

PATIENT
  Age: 67 Year
  Sex: Male

DRUGS (1)
  1. CLOZAPINE. [Suspect]
     Active Substance: CLOZAPINE
     Indication: MENTAL DISORDER
     Dosage: 400MG
     Route: 048
     Dates: start: 2020

REACTIONS (2)
  - Intestinal ischaemia [Recovered/Resolved with Sequelae]
  - Faecaloma [Recovered/Resolved]

NARRATIVE: CASE EVENT DATE: 20201216
